FAERS Safety Report 6412246-1 (Version None)
Quarter: 2009Q4

REPORT INFORMATION
  Report Type: 
  Country: None (occurrence: None)
  Receive Date: 20091023
  Receipt Date: 20091012
  Transmission Date: 20100525
  Serious: Yes (Life-Threatening, Hospitalization)
  Sender: FDA-Public Use
  Company Number: FR-GENENTECH-292450

PATIENT
  Sex: Male

DRUGS (9)
  1. RITUXIMAB [Suspect]
     Indication: MANTLE CELL LYMPHOMA
     Dosage: UNK MG/M2, UNK
     Route: 041
     Dates: start: 20081205, end: 20081205
  2. ARACYTINE [Suspect]
     Indication: MANTLE CELL LYMPHOMA
     Dosage: 2000 MG/M2, UNK
     Route: 041
     Dates: start: 20081202, end: 20081203
  3. CISPLATIN [Suspect]
     Indication: MANTLE CELL LYMPHOMA
     Dosage: 100 MG/M2, UNK
     Route: 041
     Dates: start: 20081202, end: 20081202
  4. DEXAMETHASONE [Suspect]
     Indication: MANTLE CELL LYMPHOMA
     Dosage: 40 MG/M2, UNK
     Route: 041
     Dates: start: 20081202, end: 20081205
  5. OMEPRAZOLE [Concomitant]
     Indication: DRUG USE FOR UNKNOWN INDICATION
     Dosage: UNK
     Dates: start: 20081202
  6. ZYLORIC [Concomitant]
     Indication: HYPERURICAEMIA
     Dosage: UNK
     Dates: start: 20081121
  7. ATHYMIL [Concomitant]
     Indication: DEPRESSION
  8. SEROPLEX [Concomitant]
     Indication: DEPRESSION
  9. ALPRAZOLAM [Concomitant]
     Indication: ANXIETY

REACTIONS (4)
  - ABSCESS [None]
  - ACUTE MYOCARDIAL INFARCTION [None]
  - ESCHERICHIA SEPSIS [None]
  - NEUTROPENIA [None]
